FAERS Safety Report 6466487-8 (Version None)
Quarter: 2009Q4

REPORT INFORMATION
  Report Type: 
  Country: None (occurrence: None)
  Receive Date: 20091202
  Receipt Date: 20081110
  Transmission Date: 20100525
  Serious: No
  Sender: FDA-Public Use
  Company Number: US-AMGEN-KDL318383

PATIENT
  Sex: Male

DRUGS (2)
  1. ENBREL [Suspect]
     Indication: RHEUMATOID ARTHRITIS
     Route: 058
     Dates: start: 20070917
  2. METHOTREXATE [Concomitant]
     Route: 058
     Dates: start: 20070731

REACTIONS (2)
  - ARTHRALGIA [None]
  - NASOPHARYNGITIS [None]
